FAERS Safety Report 18554602 (Version 1)
Quarter: 2020Q4

REPORT INFORMATION
  Report Type: Spontaneous
  Country: PL (occurrence: PL)
  Receive Date: 20201127
  Receipt Date: 20201127
  Transmission Date: 20210114
  Serious: Yes (Hospitalization, Other)
  Sender: FDA-Public Use
  Company Number: PL-BAUSCH-BL-2020-033829

PATIENT
  Age: 41 Year
  Sex: Female

DRUGS (7)
  1. SANDOSTATIN LAR DEPOT [Suspect]
     Active Substance: OCTREOTIDE ACETATE
     Indication: ACROMEGALY
     Dosage: 20 MG, QMO (EVERY 28 DAYS)
     Route: 065
     Dates: start: 201603, end: 201709
  2. IRON [Concomitant]
     Active Substance: IRON
     Indication: PRODUCT USED FOR UNKNOWN INDICATION
     Dosage: UNK UNK, BID
     Route: 042
     Dates: start: 201911
  3. GLUCOPHAGE [Concomitant]
     Active Substance: METFORMIN HYDROCHLORIDE
     Dosage: 1000 UNK (IN THE EVENING)
     Route: 065
     Dates: start: 201911
  4. SANDOSTATIN LAR DEPOT [Suspect]
     Active Substance: OCTREOTIDE ACETATE
     Dosage: 20 MG, BID
     Route: 065
     Dates: start: 201806
  5. GLUCOPHAGE [Concomitant]
     Active Substance: METFORMIN HYDROCHLORIDE
     Indication: PRODUCT USED FOR UNKNOWN INDICATION
     Dosage: 500 UNK (IN THE MORNING)
     Route: 065
     Dates: start: 201911
  6. METFORMIN [Suspect]
     Active Substance: METFORMIN HYDROCHLORIDE
     Indication: INSULIN RESISTANCE
     Dosage: UNK
     Route: 065
     Dates: start: 201806
  7. SANDOSTATIN LAR DEPOT [Suspect]
     Active Substance: OCTREOTIDE ACETATE
     Dosage: 30 MG
     Route: 065
     Dates: start: 201709, end: 201806

REACTIONS (13)
  - Secondary adrenocortical insufficiency [Recovering/Resolving]
  - Glucose tolerance impaired [Unknown]
  - Bile duct stone [Unknown]
  - Weight increased [Unknown]
  - Impaired fasting glucose [Unknown]
  - Insulin-like growth factor increased [Unknown]
  - Condition aggravated [Unknown]
  - Nephrolithiasis [Unknown]
  - Insulin resistance [Unknown]
  - Empty sella syndrome [Unknown]
  - Hepatic cyst [Unknown]
  - Malaise [Unknown]
  - Blood growth hormone increased [Unknown]

NARRATIVE: CASE EVENT DATE: 201806
